FAERS Safety Report 7329042-3 (Version None)
Quarter: 2011Q1

REPORT INFORMATION
  Report Type: 
  Country: None (occurrence: None)
  Receive Date: 20110303
  Receipt Date: 20110222
  Transmission Date: 20110831
  Serious: Yes (Hospitalization, Other)
  Sender: FDA-Public Use
  Company Number: JP-BAYER-200915203BYL

PATIENT
  Sex: Male
  Weight: 63 kg

DRUGS (6)
  1. NEXAVAR [Suspect]
     Indication: HEPATIC NEOPLASM MALIGNANT
     Dosage: 200 MG, BID
     Route: 048
     Dates: start: 20091013, end: 20101020
  2. NEXAVAR [Suspect]
     Route: 048
  3. MAGMITT [Concomitant]
     Indication: CONSTIPATION
     Dosage: DAILY DOSE 2 G
     Route: 048
  4. URSO 250 [Concomitant]
     Indication: CHRONIC HEPATITIS
     Dosage: DAILY DOSE 600 MG
     Route: 048
  5. NEXAVAR [Suspect]
     Route: 048
  6. TAKEPRON [Concomitant]
     Indication: REFLUX OESOPHAGITIS
     Dosage: DAILY DOSE 30 MG
     Route: 048

REACTIONS (3)
  - GASTROINTESTINAL HAEMORRHAGE [None]
  - SHOCK HAEMORRHAGIC [None]
  - MELAENA [None]
